FAERS Safety Report 9357778 (Version 1)
Quarter: 2013Q2

REPORT INFORMATION
  Report Type: Spontaneous
  Country: US (occurrence: US)
  Receive Date: 20130620
  Receipt Date: 20130620
  Transmission Date: 20140414
  Serious: No
  Sender: FDA-Public Use
  Company Number: US-009507513-1305USA016318

PATIENT
  Age: 63 Year
  Sex: Male

DRUGS (1)
  1. AZASITE [Suspect]
     Indication: ANTIBIOTIC PROPHYLAXIS
     Dosage: 1 DROP IN THE EYE, QD
     Route: 031
     Dates: start: 201305

REACTIONS (3)
  - Drug dose omission [Unknown]
  - Product quality issue [Unknown]
  - No adverse event [Unknown]
